FAERS Safety Report 17895562 (Version 1)
Quarter: 2020Q2

REPORT INFORMATION
  Report Type: Spontaneous
  Country: US (occurrence: US)
  Receive Date: 20200615
  Receipt Date: 20200615
  Transmission Date: 20200714
  Serious: Yes (Other)
  Sender: FDA-Public Use
  Company Number: US-STEMLINE THERAPEUTICS, INC.-2020ST000030

PATIENT
  Age: 44 Year
  Sex: Male

DRUGS (1)
  1. ELZONRIS [Suspect]
     Active Substance: TAGRAXOFUSP-ERZS
     Indication: SQUAMOUS CELL CARCINOMA OF SKIN
     Route: 042
     Dates: start: 20200526

REACTIONS (4)
  - Pyrexia [Recovered/Resolved]
  - Chills [Recovered/Resolved]
  - Headache [Recovered/Resolved]
  - Ventricular tachycardia [Recovered/Resolved]
